FAERS Safety Report 14454024 (Version 1)
Quarter: 2018Q1

REPORT INFORMATION
  Report Type: Spontaneous
  Country: US (occurrence: US)
  Receive Date: 20180129
  Receipt Date: 20180129
  Transmission Date: 20180509
  Serious: No
  Sender: FDA-Public Use
  Company Number: US-ALLERGAN-1802441US

PATIENT
  Age: 38 Year
  Sex: Female
  Weight: 83.9 kg

DRUGS (3)
  1. METOPROLOL. [Concomitant]
     Active Substance: METOPROLOL
     Dosage: UNK
     Route: 065
     Dates: start: 201710
  2. TAZAROTENE - BP [Suspect]
     Active Substance: TAZAROTENE
     Indication: SKIN REACTION
     Dosage: UNK, QHS
     Route: 061
     Dates: start: 20171211, end: 20171213
  3. CITALOPRAM [Concomitant]
     Active Substance: CITALOPRAM HYDROBROMIDE
     Dosage: UNK
     Route: 065
     Dates: start: 2016

REACTIONS (5)
  - Off label use [Unknown]
  - Accidental exposure to product [Unknown]
  - Application site pain [Not Recovered/Not Resolved]
  - Application site erythema [Not Recovered/Not Resolved]
  - Application site dryness [Not Recovered/Not Resolved]

NARRATIVE: CASE EVENT DATE: 20171211
